FAERS Safety Report 25666186 (Version 2)
Quarter: 2025Q3

REPORT INFORMATION
  Report Type: Report from Study
  Country: US (occurrence: US)
  Receive Date: 20250811
  Receipt Date: 20250812
  Transmission Date: 20251020
  Serious: No
  Sender: NOVARTIS
  Company Number: US-002147023-NVSC2025US126293

PATIENT
  Sex: Male

DRUGS (4)
  1. LEQVIO [Suspect]
     Active Substance: INCLISIRAN SODIUM
     Indication: Product used for unknown indication
     Route: 058
     Dates: start: 20250708
  2. Turmeric force [Concomitant]
     Indication: Product used for unknown indication
     Route: 065
  3. HERBALS\WITHANIA SOMNIFERA ROOT [Concomitant]
     Active Substance: HERBALS\WITHANIA SOMNIFERA ROOT
     Indication: Product used for unknown indication
     Route: 065
  4. PROTEIN [Concomitant]
     Active Substance: PROTEIN
     Indication: Product used for unknown indication
     Route: 065

REACTIONS (11)
  - Osteoarthritis [Not Recovered/Not Resolved]
  - Arthropathy [Unknown]
  - Muscular weakness [Not Recovered/Not Resolved]
  - Rhinorrhoea [Unknown]
  - Cyst [Unknown]
  - Oedema peripheral [Unknown]
  - Ligament rupture [Unknown]
  - Joint effusion [Unknown]
  - Synovial cyst [Unknown]
  - Skin fissures [Unknown]
  - Arthralgia [Unknown]
